FAERS Safety Report 4998919-6 (Version None)
Quarter: 2006Q2

REPORT INFORMATION
  Report Type: 
  Country: None (occurrence: None)
  Receive Date: 20060509
  Receipt Date: 20040901
  Transmission Date: 20061013
  Serious: Yes (Hospitalization)
  Sender: FDA-Public Use
  Company Number: 2004061552

PATIENT
  Age: 44 Year
  Sex: Male

DRUGS (5)
  1. TIKOSYN [Suspect]
     Indication: ATRIAL FIBRILLATION
     Dosage: 1000 MCG (500 MCG, 2 IN 1 D), ORAL
     Route: 048
     Dates: start: 20001201
  2. METOPROLOL SUCCINATE [Concomitant]
  3. ENOXAPARIN SODIUM [Concomitant]
  4. WARFARIN SODIUM [Concomitant]
  5. DILTIAZEM HYDROCHLORIDE [Concomitant]

REACTIONS (4)
  - ATRIAL FIBRILLATION [None]
  - BRADYCARDIA [None]
  - DIZZINESS [None]
  - SICK SINUS SYNDROME [None]
